FAERS Safety Report 9530089 (Version 2)
Quarter: 2013Q3

REPORT INFORMATION
  Report Type: Spontaneous
  Country: US (occurrence: US)
  Receive Date: 20130917
  Receipt Date: 20130917
  Transmission Date: 20140515
  Serious: Yes (Other)
  Sender: FDA-Public Use
  Company Number: US-ENDO PHARMACEUTICALS INC.-MODA20130004

PATIENT
  Age: 42 Year
  Sex: Female
  Weight: 59.93 kg

DRUGS (2)
  1. MODAFINIL TABLETS 200MG [Suspect]
     Indication: NARCOLEPSY
     Route: 048
     Dates: start: 20130808, end: 20130808
  2. MODAFINIL TABLETS 200MG [Suspect]
     Indication: CATAPLEXY

REACTIONS (4)
  - Fall [Recovered/Resolved]
  - Dizziness [Unknown]
  - Drug ineffective [Recovered/Resolved]
  - Headache [Unknown]
